FAERS Safety Report 11835390 (Version 1)
Quarter: 2015Q4

REPORT INFORMATION
  Report Type: Spontaneous
  Country: US (occurrence: US)
  Receive Date: 20151215
  Receipt Date: 20151215
  Transmission Date: 20160305
  Serious: Yes (Other)
  Sender: FDA-Public Use
  Company Number: US-AUROBINDO-AUR-APL-2011-04478

PATIENT
  Age: 28 Year
  Sex: Female

DRUGS (1)
  1. MINOCYCLINE HYDROCHLORIDE CAPSULES USP 50 MG [Suspect]
     Active Substance: MINOCYCLINE HYDROCHLORIDE
     Indication: ACNE
     Dosage: 100 MG,DAILY,
     Route: 065

REACTIONS (5)
  - Pain [Recovered/Resolved]
  - Paraesthesia [Recovered/Resolved]
  - Vasculitis necrotising [Recovered/Resolved]
  - Muscular weakness [Recovered/Resolved]
  - Gait disturbance [None]
